FAERS Safety Report 10210890 (Version 2)
Quarter: 2014Q3

REPORT INFORMATION
  Report Type: Spontaneous
  Country: US (occurrence: US)
  Receive Date: 20140602
  Receipt Date: 20140902
  Transmission Date: 20150326
  Serious: Yes (Hospitalization, Other)
  Sender: FDA-Public Use
  Company Number: US-BAYER-2014-082082

PATIENT
  Age: 39 Year
  Sex: Female
  Weight: 65.76 kg

DRUGS (1)
  1. YASMIN [Suspect]
     Active Substance: DROSPIRENONE\ETHINYL ESTRADIOL
     Indication: CONTRACEPTION
     Dosage: UNK
     Dates: start: 2010, end: 2011

REACTIONS (7)
  - Dyspareunia [None]
  - Abdominal pain upper [None]
  - Vulvovaginal pain [None]
  - Injury [None]
  - General physical health deterioration [None]
  - Pain [None]
  - Deep vein thrombosis [None]
